FAERS Safety Report 8305728 (Version 2)
Quarter: 2013Q4

REPORT INFORMATION
  Report Type: Spontaneous
  Country: US (occurrence: US)
  Receive Date: 20111221
  Receipt Date: 20131216
  Transmission Date: 20140711
  Serious: Yes (Hospitalization)
  Sender: FDA-Public Use
  Company Number: US-GLAXOSMITHKLINE-A0938842A

PATIENT
  Age: 28 Year
  Sex: Male

DRUGS (1)
  1. AVANDIA [Suspect]
     Indication: DIABETES MELLITUS
     Dosage: 4MG PER DAY
     Route: 048
     Dates: start: 20021206, end: 20030117

REACTIONS (3)
  - Cardiac failure congestive [Unknown]
  - Cardiomyopathy [Unknown]
  - Cardiovascular disorder [Unknown]
